FAERS Safety Report 7758759-1 (Version None)
Quarter: 2011Q3

REPORT INFORMATION
  Report Type: 
  Country: None (occurrence: None)
  Receive Date: 20110919
  Receipt Date: 20110915
  Transmission Date: 20111222
  Serious: Yes (Death)
  Sender: FDA-Public Use
  Company Number: AU-B.I. PHARMACEUTICALS,INC./RIDGEFIELD-2011-AU-01401AU

PATIENT
  Sex: Female

DRUGS (11)
  1. NOTEN [Concomitant]
  2. PHYSIOTENS [Concomitant]
  3. SERAPAX [Concomitant]
  4. FOSAMAX [Concomitant]
  5. SYMBICORT [Concomitant]
  6. AVANDIA [Concomitant]
  7. PRADAXA [Suspect]
     Indication: ATRIAL FIBRILLATION
     Dates: start: 20110815, end: 20110914
  8. CRESTOR [Concomitant]
  9. NEXIUM [Concomitant]
  10. ZANEXTRA [Concomitant]
  11. KARVEA [Concomitant]

REACTIONS (3)
  - LETHARGY [None]
  - NAUSEA [None]
  - DEATH [None]
